FAERS Safety Report 4698158-2 (Version None)
Quarter: 2005Q2

REPORT INFORMATION
  Report Type: 
  Country: None (occurrence: None)
  Receive Date: 20050623
  Receipt Date: 20040519
  Transmission Date: 20051028
  Serious: Yes (Other)
  Sender: FDA-Public Use
  Company Number: FR-GLAXOSMITHKLINE-B0333251A

PATIENT
  Age: 31 Year
  Sex: Female

DRUGS (3)
  1. ZENTEL [Suspect]
     Dosage: 400MG SINGLE DOSE
     Route: 048
     Dates: start: 20040515, end: 20040515
  2. DIROX [Concomitant]
     Route: 048
     Dates: start: 20040413, end: 20040415
  3. LINCOMYCIN HCL [Concomitant]
     Dosage: 2ML SINGLE DOSE
     Route: 030
     Dates: start: 20040415, end: 20040415

REACTIONS (1)
  - ABORTION INDUCED [None]
